FAERS Safety Report 15919511 (Version 1)
Quarter: 2019Q1

REPORT INFORMATION
  Report Type: Spontaneous
  Country: US (occurrence: US)
  Receive Date: 20190205
  Receipt Date: 20190205
  Transmission Date: 20190417
  Serious: No
  Sender: FDA-Public Use
  Company Number: US-ROCHE-2091444

PATIENT
  Age: 44 Year
  Sex: Male

DRUGS (2)
  1. KENALOG (CANADA) [Concomitant]
     Route: 030
     Dates: start: 20180207
  2. XOLAIR [Suspect]
     Active Substance: OMALIZUMAB
     Indication: IDIOPATHIC URTICARIA
     Route: 058
     Dates: start: 20180219, end: 20180607

REACTIONS (5)
  - Anxiety [Recovered/Resolved]
  - Drug ineffective [Unknown]
  - Flushing [Unknown]
  - Hot flush [Recovered/Resolved]
  - Dysphonia [Recovered/Resolved]

NARRATIVE: CASE EVENT DATE: 20180615
